FAERS Safety Report 7659153-4 (Version None)
Quarter: 2011Q3

REPORT INFORMATION
  Report Type: 
  Country: None (occurrence: None)
  Receive Date: 20110805
  Receipt Date: 20110720
  Transmission Date: 20111222
  Serious: Yes (Other)
  Sender: FDA-Public Use
  Company Number: SE-GLAXOSMITHKLINE-B0734869A

PATIENT
  Sex: Male
  Weight: 80 kg

DRUGS (5)
  1. BUPROPION HYDROCHLORIDE [Suspect]
     Indication: DEPRESSION
     Dosage: 300MG PER DAY
     Route: 065
     Dates: start: 20110401
  2. CONCERTA [Concomitant]
     Indication: ATTENTION DEFICIT/HYPERACTIVITY DISORDER
     Dosage: 18MG TWICE PER DAY
     Route: 065
  3. WELLBUTRIN [Suspect]
     Indication: DEPRESSION
     Route: 065
  4. LYRICA [Suspect]
     Indication: PRODUCT USED FOR UNKNOWN INDICATION
     Dosage: 75MG PER DAY
     Route: 065
     Dates: start: 20110720
  5. ZOPICLONE [Suspect]
     Indication: SLEEP DISORDER
     Route: 065

REACTIONS (8)
  - DECREASED APPETITE [None]
  - FEELING DRUNK [None]
  - APHASIA [None]
  - HALLUCINATION, AUDITORY [None]
  - DYSARTHRIA [None]
  - DRUG INTERACTION [None]
  - STRABISMUS [None]
  - NIGHTMARE [None]
